FAERS Safety Report 16169890 (Version 1)
Quarter: 2019Q2

REPORT INFORMATION
  Report Type: Spontaneous
  Country: JP (occurrence: JP)
  Receive Date: 20190408
  Receipt Date: 20190408
  Transmission Date: 20190711
  Serious: Yes (Hospitalization, Other)
  Sender: FDA-Public Use
  Company Number: JP-ELI_LILLY_AND_COMPANY-JP201904002124

PATIENT
  Age: 49 Year
  Sex: Male
  Weight: 85 kg

DRUGS (19)
  1. OLANZAPINE. [Suspect]
     Active Substance: OLANZAPINE
     Dosage: 5 MG, DAILY
     Route: 048
     Dates: start: 20180801, end: 20180808
  2. CLOZARIL [Suspect]
     Active Substance: CLOZAPINE
     Indication: SCHIZOPHRENIA
     Dosage: UNK UNK, UNKNOWN
     Route: 048
     Dates: start: 20180719
  3. CLOZARIL [Suspect]
     Active Substance: CLOZAPINE
     Dosage: 25 G, UNKNOWN
     Route: 048
     Dates: start: 20180720, end: 20180721
  4. CLOZARIL [Suspect]
     Active Substance: CLOZAPINE
     Dosage: 100 MG, UNKNOWN
     Route: 048
     Dates: start: 20180726, end: 20180727
  5. CLOZARIL [Suspect]
     Active Substance: CLOZAPINE
     Dosage: 150 MG, UNKNOWN
     Route: 048
     Dates: start: 20180730, end: 20180805
  6. LORAZEPAM. [Concomitant]
     Active Substance: LORAZEPAM
     Indication: PRODUCT USED FOR UNKNOWN INDICATION
     Dosage: 3 MG, DAILY
     Route: 048
  7. CLOZARIL [Suspect]
     Active Substance: CLOZAPINE
     Dosage: 75 MG, DAILY
     Route: 048
     Dates: start: 20180807, end: 20180809
  8. RISPERIDONE. [Concomitant]
     Active Substance: RISPERIDONE
     Dosage: 6 MG, UNKNOWN
     Route: 048
     Dates: start: 20180725, end: 20180731
  9. RISPERIDONE. [Concomitant]
     Active Substance: RISPERIDONE
     Dosage: 3 MG, DAILY
     Route: 048
     Dates: start: 20180801, end: 20180808
  10. CLOZARIL [Suspect]
     Active Substance: CLOZAPINE
     Dosage: 50 MG, UNKNOWN
     Route: 048
     Dates: start: 20180722, end: 20180723
  11. OLANZAPINE. [Suspect]
     Active Substance: OLANZAPINE
     Dosage: 20 MG, UNKNOWN
     Route: 048
     Dates: start: 20180809
  12. CLOZARIL [Suspect]
     Active Substance: CLOZAPINE
     Dosage: 75 MG, UNKNOWN
     Route: 048
     Dates: start: 20180724, end: 20180725
  13. RISPERIDONE. [Concomitant]
     Active Substance: RISPERIDONE
     Indication: SCHIZOPHRENIA
     Dosage: 9 MG, UNKNOWN
     Route: 048
     Dates: start: 201711, end: 20180724
  14. OLANZAPINE. [Suspect]
     Active Substance: OLANZAPINE
     Indication: SCHIZOPHRENIA
     Dosage: 20 MG, UNKNOWN
     Route: 048
     Dates: end: 20180724
  15. OLANZAPINE. [Suspect]
     Active Substance: OLANZAPINE
     Dosage: 10 MG, UNKNOWN
     Route: 048
     Dates: start: 20180725, end: 20180731
  16. CLOZARIL [Suspect]
     Active Substance: CLOZAPINE
     Dosage: 75 MG, EACH MORNING
     Route: 048
     Dates: start: 20180806, end: 20180806
  17. ZOTEPINE [Concomitant]
     Active Substance: ZOTEPINE
     Indication: SCHIZOPHRENIA
     Dosage: 300 MG, UNK
     Route: 048
     Dates: end: 20180724
  18. CLOZARIL [Suspect]
     Active Substance: CLOZAPINE
     Dosage: 125 MG, UNKNOWN
     Route: 048
     Dates: start: 20180728, end: 20180729
  19. ZOTEPINE [Concomitant]
     Active Substance: ZOTEPINE
     Dosage: 150 MG, UNKNOWN
     Route: 048
     Dates: start: 20180725, end: 20180801

REACTIONS (18)
  - Computerised tomogram thorax abnormal [Recovered/Resolved]
  - Gastrointestinal wall thickening [Recovered/Resolved]
  - Enteritis [Recovered/Resolved]
  - Chest discomfort [Unknown]
  - Atypical pneumonia [Unknown]
  - Dizziness [Unknown]
  - Cold sweat [Unknown]
  - Dyspnoea [Unknown]
  - Dyspepsia [Unknown]
  - Vomiting [Unknown]
  - Constipation [Unknown]
  - Constipation [Unknown]
  - Salivary hypersecretion [Unknown]
  - Nausea [Unknown]
  - Ileus [Unknown]
  - Intestinal dilatation [Recovered/Resolved]
  - Blood pressure increased [Unknown]
  - Pyrexia [Recovered/Resolved]

NARRATIVE: CASE EVENT DATE: 20180724
